FAERS Safety Report 16950344 (Version 2)
Quarter: 2019Q4

REPORT INFORMATION
  Report Type: Spontaneous
  Country: US (occurrence: US)
  Receive Date: 20191023
  Receipt Date: 20191108
  Transmission Date: 20200122
  Serious: Yes (Other)
  Sender: FDA-Public Use
  Company Number: US-TEVA-2019-US-1104147

PATIENT
  Age: 59 Year
  Sex: Female

DRUGS (2)
  1. AJOVY [Suspect]
     Active Substance: FREMANEZUMAB-VFRM
     Indication: MIGRAINE
     Route: 058
  2. AIMOVIG [Suspect]
     Active Substance: ERENUMAB-AOOE
     Indication: MIGRAINE
     Dosage: IN PRE-FILLED SYRINGE
     Route: 058
     Dates: start: 20181005, end: 20190304

REACTIONS (7)
  - Thirst [Unknown]
  - Arthralgia [Unknown]
  - Influenza like illness [Unknown]
  - Pollakiuria [Unknown]
  - Myalgia [Unknown]
  - Constipation [Unknown]
  - Erythema [Unknown]

NARRATIVE: CASE EVENT DATE: 2019
